FAERS Safety Report 14848931 (Version 3)
Quarter: 2018Q2

REPORT INFORMATION
  Report Type: Spontaneous
  Country: JP (occurrence: JP)
  Receive Date: 20180504
  Receipt Date: 20180515
  Transmission Date: 20180711
  Serious: Yes (Hospitalization)
  Sender: FDA-Public Use
  Company Number: JP-ASTRAZENECA-2018SE57249

PATIENT
  Age: 92 Year
  Sex: Female

DRUGS (1)
  1. SYMBICORT [Suspect]
     Active Substance: BUDESONIDE\FORMOTEROL FUMARATE DIHYDRATE
     Dosage: DOSE AND FREQUENCY UNKNOWN UNKNOWN
     Route: 055

REACTIONS (2)
  - Dysphonia [Unknown]
  - Diverticulum intestinal haemorrhagic [Unknown]

NARRATIVE: CASE EVENT DATE: 20180427
